FAERS Safety Report 8727075 (Version 4)
Quarter: 2013Q3

REPORT INFORMATION
  Report Type: Spontaneous
  Country: US (occurrence: US)
  Receive Date: 20120816
  Receipt Date: 20130702
  Transmission Date: 20140515
  Serious: Yes (Hospitalization)
  Sender: FDA-Public Use
  Company Number: US-B.I. PHARMACEUTICALS,INC./RIDGEFIELD-2012-BP-18782BP

PATIENT
  Age: 80 Year
  Sex: Female
  Weight: 59.42 kg

DRUGS (15)
  1. PRADAXA [Suspect]
     Indication: ATRIAL FIBRILLATION
     Dosage: 300 MG
     Route: 048
     Dates: start: 20110519, end: 20110528
  2. TYLENOL [Concomitant]
     Indication: PYREXIA
     Route: 048
  3. KLONOPIN [Concomitant]
  4. PRINIVIL [Concomitant]
     Indication: HYPERTENSION
     Dosage: 20 MG
     Route: 048
  5. METOPROLOL TARTRATE [Concomitant]
     Indication: HYPERTENSION
     Dosage: 50 MG
     Route: 048
  6. SM OYSTER SHELL CALCIUM [Concomitant]
     Dosage: 500 MG
  7. VITAMIN D-3 [Concomitant]
     Dosage: 1000 U
     Route: 048
  8. OMEPRAZOLE [Concomitant]
     Dosage: 20 MG
  9. ARICEPT [Concomitant]
     Dosage: 5 MG
  10. ASPIRIN [Concomitant]
     Indication: HYPERTENSION
     Dosage: 81 MG
     Route: 048
  11. AMIODARONE [Concomitant]
     Dosage: 200 MG
     Route: 048
  12. SYNTHROID [Concomitant]
     Dosage: 100 MCG
     Route: 048
  13. MILK OF MAGNESIA [Concomitant]
     Route: 048
  14. SIMVASTATIN [Concomitant]
     Dosage: 40 MG
     Route: 048
  15. CYANOCOBALAMIN [Concomitant]
     Route: 030

REACTIONS (4)
  - Vaginal haemorrhage [Unknown]
  - Gastrointestinal haemorrhage [Recovered/Resolved]
  - Coagulopathy [Unknown]
  - Rectal haemorrhage [Unknown]
